FAERS Safety Report 18041746 (Version 1)
Quarter: 2020Q3

REPORT INFORMATION
  Report Type: Spontaneous
  Country: DE (occurrence: DE)
  Receive Date: 20200720
  Receipt Date: 20200720
  Transmission Date: 20201103
  Serious: Yes (Hospitalization)
  Sender: FDA-Public Use
  Company Number: DE-TEVA-2020-DE-1801527

PATIENT
  Age: 11 Year
  Sex: Female
  Weight: 49 kg

DRUGS (3)
  1. IODID [Suspect]
     Active Substance: IODINE
     Dosage: 11 DOSAGE FORMS DAILY; DAILY DOSE: 11 DF DOSAGE FORM EVERY TOTAL
     Dates: start: 20190318, end: 20190318
  2. MAGNESIUM [Concomitant]
     Active Substance: MAGNESIUM
     Dosage: DOSAGE UNCLEAR
  3. CETIRIZINE [Suspect]
     Active Substance: CETIRIZINE HYDROCHLORIDE
     Dosage: 20 MILLIGRAM DAILY; DAILY DOSE: 20 MG MILLGRAM(S) EVERY 5 TOTAL
     Dates: start: 20190318, end: 20190318

REACTIONS (3)
  - Dizziness [Recovered/Resolved]
  - Nausea [Recovered/Resolved]
  - Overdose [Recovered/Resolved]

NARRATIVE: CASE EVENT DATE: 20190318
